FAERS Safety Report 5069694-4 (Version None)
Quarter: 2006Q3

REPORT INFORMATION
  Report Type: 
  Country: None (occurrence: None)
  Receive Date: 20060714
  Receipt Date: 20060404
  Transmission Date: 20061208
  Serious: No
  Sender: FDA-Public Use
  Company Number: 2006SP001539

PATIENT
  Age: 76 Year
  Sex: Female
  Weight: 62.1428 kg

DRUGS (6)
  1. LUNESTA [Suspect]
     Indication: INSOMNIA
     Dosage: 3 MG;HS;ORAL
     Route: 048
     Dates: start: 20060327, end: 20060329
  2. BENICAR [Concomitant]
  3. PREVACID [Concomitant]
  4. TRICOR [Concomitant]
  5. TOPROL-XL [Concomitant]
  6. GLUCOTROL [Concomitant]

REACTIONS (3)
  - HEADACHE [None]
  - NERVOUSNESS [None]
  - PARADOXICAL DRUG REACTION [None]
